FAERS Safety Report 8291735-1 (Version None)
Quarter: 2012Q2

REPORT INFORMATION
  Report Type: 
  Country: None (occurrence: None)
  Receive Date: 20120417
  Receipt Date: 20110304
  Transmission Date: 20120825
  Serious: No
  Sender: FDA-Public Use
  Company Number: US-ASTRAZENECA-2011SE08743

PATIENT
  Age: 78 Year
  Sex: Female

DRUGS (11)
  1. NEXIUM [Suspect]
     Route: 048
     Dates: start: 20100101
  2. DICLOFENAC SODIUM [Concomitant]
  3. NEXIUM [Suspect]
     Indication: GASTROOESOPHAGEAL REFLUX DISEASE
     Route: 048
  4. PLAVIX [Concomitant]
  5. PROVENTIL [Concomitant]
  6. FLUOXETINE [Concomitant]
  7. PRAVASTATIN [Concomitant]
  8. SYMBICORT [Concomitant]
  9. RANITIDINE [Concomitant]
  10. NASAL SPRAY [Concomitant]
  11. CILOSTAZOL [Concomitant]

REACTIONS (6)
  - DYSPHONIA [None]
  - LARYNGITIS [None]
  - THROAT IRRITATION [None]
  - VOCAL CORD THICKENING [None]
  - VOCAL CORD INFLAMMATION [None]
  - COUGH [None]
